FAERS Safety Report 8465712-1 (Version None)
Quarter: 2012Q2

REPORT INFORMATION
  Report Type: 
  Country: None (occurrence: None)
  Receive Date: 20120620
  Receipt Date: 20120620
  Transmission Date: 20120825
  Serious: Yes (Life-Threatening, Hospitalization)
  Sender: FDA-Public Use
  Company Number: None

PATIENT
  Sex: Male
  Weight: 88.4514 kg

DRUGS (1)
  1. LISINOPRIL AND HYDROCHLOROTHIAZIDE [Suspect]
     Indication: HYPERTENSION
     Dosage: ONE PILL A DAY

REACTIONS (4)
  - PHARYNGEAL OEDEMA [None]
  - DYSPHAGIA [None]
  - LACRIMATION INCREASED [None]
  - OROPHARYNGEAL PAIN [None]
